FAERS Safety Report 17180811 (Version 6)
Quarter: 2020Q1

REPORT INFORMATION
  Report Type: Spontaneous
  Country: CN (occurrence: CN)
  Receive Date: 20191220
  Receipt Date: 20200221
  Transmission Date: 20200409
  Serious: Yes (Death, Hospitalization, Other)
  Sender: FDA-Public Use
  Company Number: CN-AMGEN-CHNSP2019210908

PATIENT
  Age: 86 Year
  Sex: Male
  Weight: 78 kg

DRUGS (3)
  1. IRBESARTAN. [Concomitant]
     Active Substance: IRBESARTAN
     Indication: HYPERTENSION
     Dosage: 150 MILLIGRAM, QD
  2. HUMULIN NOS [Concomitant]
     Active Substance: INSULIN HUMAN
     Dosage: 46 DOSAGE FORM, DAILY (24 UNITS IN THE MORNING, 22 UNITS IN THE EVENING)
  3. ENBREL [Suspect]
     Active Substance: ETANERCEPT
     Indication: ANKYLOSING SPONDYLITIS
     Dosage: 1 DOSAGE FORM
     Route: 058
     Dates: start: 20191118, end: 20191123

REACTIONS (4)
  - Acute coronary syndrome [Fatal]
  - Decreased appetite [Unknown]
  - Therapeutic product effect incomplete [Unknown]
  - Depressed mood [Unknown]

NARRATIVE: CASE EVENT DATE: 20191126
